FAERS Safety Report 7494974-2 (Version None)
Quarter: 2011Q2

REPORT INFORMATION
  Report Type: 
  Country: None (occurrence: None)
  Receive Date: 20110520
  Receipt Date: 20110504
  Transmission Date: 20111010
  Serious: No
  Sender: FDA-Public Use
  Company Number: US-B.I. PHARMACEUTICALS,INC./RIDGEFIELD-2011-BP-03772BP

PATIENT
  Age: 62 Year
  Sex: Female

DRUGS (5)
  1. PRADAXA [Suspect]
     Indication: ANTICOAGULANT THERAPY
  2. PRADAXA [Suspect]
     Indication: ATRIAL FIBRILLATION
     Dosage: 300 MG
     Route: 048
     Dates: start: 20110110
  3. SIMVASTATIN [Concomitant]
     Indication: BLOOD CHOLESTEROL
  4. VERPAMIL HCL [Concomitant]
     Indication: HEART RATE
     Dates: start: 20010101
  5. SYNTHROID [Concomitant]
     Indication: HYPOTHYROIDISM
     Dates: start: 19910101

REACTIONS (2)
  - DIZZINESS [None]
  - FATIGUE [None]
